FAERS Safety Report 15015221 (Version 1)
Quarter: 2018Q2

REPORT INFORMATION
  Report Type: Spontaneous
  Country: US (occurrence: US)
  Receive Date: 20180530
  Receipt Date: 20180530
  Transmission Date: 20180711
  Serious: Yes (Hospitalization)
  Sender: FDA-Public Use
  Company Number: None

PATIENT
  Age: 58 Year
  Sex: Female
  Weight: 57.6 kg

DRUGS (8)
  1. AMLODIPINE 5 MG TWICE DAILY [Concomitant]
  2. DOXAZOSIN 1 MG NIGHTLY [Concomitant]
  3. ZARXIO [Suspect]
     Active Substance: FILGRASTIM-SNDZ
     Indication: HAEMATOPOIETIC STEM CELL MOBILISATION
     Route: 058
     Dates: start: 20180511, end: 20180512
  4. DEXAMETHASONE 40 MG WEEKLY [Concomitant]
  5. ACYCLOVIR 400 MG DAILY [Concomitant]
  6. ATORVASTATIN 10 MG DAILY [Concomitant]
  7. ASPIRIN 81 MG DAILY [Concomitant]
  8. NEBIVOLOL 10 MG DAILY [Concomitant]

REACTIONS (5)
  - Pulmonary alveolar haemorrhage [None]
  - Respiratory tract congestion [None]
  - Blood creatinine increased [None]
  - Haemoglobin decreased [None]
  - Haematuria [None]

NARRATIVE: CASE EVENT DATE: 20180512
